FAERS Safety Report 12866112 (Version 1)
Quarter: 2016Q4

REPORT INFORMATION
  Report Type: Spontaneous
  Country: US (occurrence: US)
  Receive Date: 20161020
  Receipt Date: 20161020
  Transmission Date: 20170207
  Serious: No
  Sender: FDA-Public Use
  Company Number: US-GLAXOSMITHKLINE-US2016GSK153725

PATIENT

DRUGS (1)
  1. ACITRETIN. [Suspect]
     Active Substance: ACITRETIN
     Indication: PRODUCT USED FOR UNKNOWN INDICATION
     Dosage: UNK
     Dates: start: 2015

REACTIONS (9)
  - Pruritus [Unknown]
  - Pruritus generalised [Unknown]
  - Anxiety [Unknown]
  - Oral mucosal exfoliation [Unknown]
  - Skin exfoliation [Not Recovered/Not Resolved]
  - Pain [Unknown]
  - Depression [Unknown]
  - Mouth swelling [Unknown]
  - Dry skin [Not Recovered/Not Resolved]
